FAERS Safety Report 9806045 (Version 1)
Quarter: 2014Q1

REPORT INFORMATION
  Report Type: Spontaneous
  Country: GB (occurrence: None)
  Receive Date: 20140107
  Receipt Date: 20140107
  Transmission Date: 20141002
  Serious: Yes (Hospitalization, Other)
  Sender: FDA-Public Use
  Company Number: AUR-APL-2014-00003

PATIENT
  Sex: Female

DRUGS (12)
  1. OLANZAPINE [Suspect]
     Indication: PRODUCT USED FOR UNKNOWN INDICATION
     Dosage: 5MG (5MG 1 IN 1 D)
     Dates: start: 20120112, end: 20120114
  2. ETHANOL [Suspect]
     Indication: PRODUCT USED FOR UNKNOWN INDICATION
  3. RISPERDAL [Suspect]
     Indication: SCHIZOPHRENIA, PARANOID TYPE
     Dosage: 6MG (3MG, 2 IN 1D) ORAL
     Route: 048
     Dates: start: 20120308, end: 20120609
  4. CHLORPROMAZINE [Suspect]
     Indication: SCHIZOPHRENIA, PARANOID TYPE
     Dosage: 25MG, 3 IN 1 D) ORAL
     Route: 048
     Dates: start: 20111215, end: 20121219
  5. CYCLIZINE [Suspect]
     Indication: PRODUCT USED FOR UNKNOWN INDICATION
     Dates: start: 20111228, end: 20120131
  6. ENTONOX [Suspect]
     Indication: ANALGESIC THERAPY
     Route: 055
     Dates: start: 20120718, end: 20120718
  7. HALOPERIDOL [Suspect]
     Indication: SCHIZOPHRENIA, PARANOID TYPE
     Dosage: 10MG (5MG, 2 IN 1 D) ORAL
     Route: 048
     Dates: start: 20111229, end: 20120104
  8. PROMETHAZINE (PROMETHAZINE) [Suspect]
     Indication: PRODUCT USED FOR UNKNOWN INDICATION
     Dates: start: 20111216
  9. SENNA (SENNA ALEXANDRINA) [Suspect]
     Indication: PRODUCT USED FOR UNKNOWN INDICATION
     Dates: start: 20120116
  10. ZOPICLONE [Suspect]
     Indication: INSOMNIA
     Dates: start: 20120210, end: 20120718
  11. SYNTOMETRINE [Suspect]
     Indication: PRODUCT USED FOR UNKNOWN INDICATION
     Dosage: 1 AMPOULE, INTRAMUSCULAR
     Dates: start: 20120718, end: 20120718
  12. SYNTOMETRINE [Suspect]
     Indication: SLEEP DISORDER
     Dosage: 1 AMPOULE, INTRAMUSCULAR
     Dates: start: 20120718, end: 20120718

REACTIONS (5)
  - Maternal exposure during pregnancy [None]
  - Refusal of treatment by patient [None]
  - Pregnancy [None]
  - Schizoaffective disorder [None]
  - Blood iron decreased [None]
